FAERS Safety Report 18988697 (Version 2)
Quarter: 2021Q1

REPORT INFORMATION
  Report Type: Spontaneous
  Country: US (occurrence: US)
  Receive Date: 20210309
  Receipt Date: 20210311
  Transmission Date: 20210420
  Serious: No
  Sender: FDA-Public Use
  Company Number: US-JNJFOC-20210242308

PATIENT
  Age: 38 Year
  Sex: Male
  Weight: 108.96 kg

DRUGS (1)
  1. MENS ROGAINE EXTRA STRENGTH [Suspect]
     Active Substance: MINOXIDIL
     Indication: ALOPECIA
     Dosage: DOSE: SMALL LEMON SIZE?PRODUCT LAST ADMINISTERED ON 12?FEB?2021
     Route: 061
     Dates: start: 20210212

REACTIONS (5)
  - Hair injury [Recovered/Resolved]
  - Application site pain [Recovered/Resolved]
  - Heart rate increased [Not Recovered/Not Resolved]
  - Product use in unapproved indication [Unknown]
  - Application site reaction [Recovered/Resolved]

NARRATIVE: CASE EVENT DATE: 202102
